FAERS Safety Report 6667387-0 (Version None)
Quarter: 2010Q1

REPORT INFORMATION
  Report Type: 
  Country: None (occurrence: None)
  Receive Date: 20100331
  Receipt Date: 20100316
  Transmission Date: 20100710
  Serious: Yes (Life-Threatening)
  Sender: FDA-Public Use
  Company Number: 008677

PATIENT
  Age: 83 Year
  Sex: Male
  Weight: 41 kg

DRUGS (5)
  1. PLETAL [Suspect]
     Indication: ASPIRATION
     Dosage: 50 MG , BID, ORAL
     Route: 048
     Dates: start: 20090902, end: 20100112
  2. HOKUNALIN (TULOBUTEROL HYDROCHLORIDE) [Concomitant]
  3. ALBUMIN (HUMAN) [Concomitant]
  4. ROCEPHIN [Concomitant]
  5. DEPAKENE [Concomitant]

REACTIONS (6)
  - APHAGIA [None]
  - DISSEMINATED INTRAVASCULAR COAGULATION [None]
  - DYSPHAGIA [None]
  - GENERAL PHYSICAL CONDITION ABNORMAL [None]
  - PLATELET COUNT DECREASED [None]
  - PNEUMONIA [None]
